FAERS Safety Report 20751924 (Version 1)
Quarter: 2022Q2

REPORT INFORMATION
  Report Type: Spontaneous
  Country: US (occurrence: US)
  Receive Date: 20220426
  Receipt Date: 20220426
  Transmission Date: 20220720
  Serious: No
  Sender: FDA-Public Use
  Company Number: US-PFIZER INC-202101128456

PATIENT
  Age: 53 Year
  Sex: Male
  Weight: 129.27 kg

DRUGS (1)
  1. GABAPENTIN [Suspect]
     Active Substance: GABAPENTIN
     Indication: Pain
     Dosage: 800 MG, 3X/DAY (800MG THREE TIMES A DAY, BUT HE ONLY TAKES IT ONCE A DAY)

REACTIONS (2)
  - Dizziness [Unknown]
  - Overdose [Unknown]
